FAERS Safety Report 8507706-3 (Version None)
Quarter: 2012Q3

REPORT INFORMATION
  Report Type: 
  Country: None (occurrence: None)
  Receive Date: 20120713
  Receipt Date: 20120703
  Transmission Date: 20120928
  Serious: Yes (Death, Hospitalization, Other)
  Sender: FDA-Public Use
  Company Number: US-009507513-2012SP028343

PATIENT

DRUGS (18)
  1. MELATONIN [Concomitant]
     Dosage: UNK
  2. KEPPRA [Concomitant]
     Dosage: 1500 MG, BID
     Dates: start: 20070701
  3. FELBATOL [Suspect]
     Dosage: 900 MG, BID
     Route: 048
     Dates: start: 20031001
  4. KEPPRA [Concomitant]
     Dosage: 750 MG AM, 500 MG PM
     Dates: start: 20061101
  5. FELBATOL [Suspect]
     Indication: MYOCLONIC EPILEPSY
     Dosage: UNK
     Route: 048
     Dates: start: 19900101
  6. BANZEL [Concomitant]
     Indication: PRODUCT USED FOR UNKNOWN INDICATION
     Dosage: 200 MG, QD
  7. ZONEGRAN [Concomitant]
     Dosage: 100 MG, EVERY BED TIME
     Dates: start: 20080101
  8. FELBATOL [Suspect]
     Dosage: 1800 MG AM AND 1200 MG PM
     Route: 048
     Dates: start: 20060501
  9. FELBATOL [Suspect]
     Dosage: 1800 MG AM AND 900 MG PM
     Route: 048
     Dates: start: 20080101
  10. ZONEGRAN [Concomitant]
     Dosage: 200 MG, QPM
  11. KEPPRA [Concomitant]
     Dosage: 250 MG, BID
     Dates: start: 20060501
  12. SELENIUM (UNSPECIFIED) [Concomitant]
     Dosage: UNK
  13. FELBATOL [Suspect]
     Dosage: 900 MG AM AND 600 MG PM
     Route: 048
     Dates: start: 20030501
  14. FELBATOL [Suspect]
     Dosage: 1200 MG, BID
     Route: 048
     Dates: start: 20040101
  15. HYDROXOCOBALAMIN [Concomitant]
     Dosage: UNK
  16. KEPPRA [Concomitant]
     Dosage: 750 MG, BID
     Dates: start: 20070601
  17. VIMPAT [Concomitant]
     Dosage: 200 MG, BID
  18. FELBATOL [Suspect]
     Dosage: 1500 MG AM AND 1200 MG PM
     Route: 048
     Dates: start: 20050601

REACTIONS (9)
  - CONSTIPATION [None]
  - ABDOMINAL PAIN [None]
  - VOMITING [None]
  - GASTROOESOPHAGEAL REFLUX DISEASE [None]
  - WEIGHT DECREASED [None]
  - PYREXIA [None]
  - DECREASED APPETITE [None]
  - HELICOBACTER INFECTION [None]
  - STARING [None]
